FAERS Safety Report 14831743 (Version 5)
Quarter: 2018Q4

REPORT INFORMATION
  Report Type: Report from Study
  Country: DE (occurrence: DE)
  Receive Date: 20180501
  Receipt Date: 20181205
  Transmission Date: 20190204
  Serious: Yes (Death, Hospitalization)
  Sender: FDA-Public Use
  Company Number: DE-ACCORD-066321

PATIENT
  Age: 67 Year
  Sex: Female
  Weight: 95 kg

DRUGS (14)
  1. FLECAINIDE [Concomitant]
     Active Substance: FLECAINIDE
     Indication: ARRHYTHMIA
     Route: 048
  2. MACROGOL/MACROGOL STEARATE [Concomitant]
     Indication: CONSTIPATION
  3. FOLINIC ACID [Suspect]
     Active Substance: LEUCOVORIN
     Indication: COLORECTAL CANCER
     Dosage: 560 MG FROM 06-NOV-2013
     Route: 042
     Dates: start: 20130210
  4. IRINOTECAN [Suspect]
     Active Substance: IRINOTECAN
     Indication: COLORECTAL CANCER
     Dosage: 360 MG FROM 11-FEB-2013 TO 11-MAR-2013, 280 MG FROM 06-NOV-2013
     Route: 042
     Dates: start: 20130715
  5. MARCUMAR [Concomitant]
     Active Substance: PHENPROCOUMON
     Indication: ATRIAL FIBRILLATION
     Dosage: AS REQUIRED
     Route: 048
  6. FUROSEMIDE. [Concomitant]
     Active Substance: FUROSEMIDE
  7. FLUOROURACIL. [Suspect]
     Active Substance: FLUOROURACIL
     Indication: COLORECTAL CANCER
     Dosage: LAST ADMINISTRATION 17-JUL-2013
     Route: 041
     Dates: start: 20130325
  8. AVASTIN [Suspect]
     Active Substance: BEVACIZUMAB
     Indication: COLORECTAL CANCER METASTATIC
     Dosage: LAST ADMINISTRATION DATE: 11-FEB-2013
     Route: 042
     Dates: start: 20130211
  9. PANTOZOL [Concomitant]
     Active Substance: PANTOPRAZOLE SODIUM
     Indication: PROPHYLAXIS
     Route: 048
  10. METOPROLOL. [Concomitant]
     Active Substance: METOPROLOL
     Indication: CARDIAC FAILURE
  11. PHENPROCOUMON [Concomitant]
     Active Substance: PHENPROCOUMON
     Indication: ATRIAL FIBRILLATION
  12. NOVAMINSULFON [Concomitant]
     Active Substance: METAMIZOLE
     Indication: PAIN
     Route: 048
  13. METOCLOPRAMIDE. [Concomitant]
     Active Substance: METOCLOPRAMIDE
     Indication: VOMITING
     Dosage: 3 X 20 DROPS
  14. OPIPRAMOL/OPIPRAMOL HYDROCHLORIDE [Concomitant]
     Indication: DEPRESSION
     Route: 048

REACTIONS (6)
  - Malignant neoplasm progression [Fatal]
  - Infection [Fatal]
  - General physical health deterioration [Fatal]
  - Laboratory test abnormal [Not Recovered/Not Resolved]
  - Abdominal pain upper [Fatal]
  - Pneumonia [Fatal]

NARRATIVE: CASE EVENT DATE: 2013
